FAERS Safety Report 8831473 (Version 2)
Quarter: 2012Q4

REPORT INFORMATION
  Report Type: 
  Country: US (occurrence: US)
  Receive Date: 20121009
  Receipt Date: 20121019
  Transmission Date: 20130627
  Serious: Yes (Hospitalization)
  Sender: FDA-Public Use
  Company Number: US-BAXTER-2012BAX018941

PATIENT
  Age: 57 Year
  Sex: Male

DRUGS (2)
  1. DIANEAL LOW CALCIUM (ULTRABAG) [Suspect]
     Indication: PERITONEAL DIALYSIS
     Route: 033
  2. COUMADIN [Suspect]
     Indication: HEART DISEASE, UNSPECIFIED

REACTIONS (1)
  - Anticoagulation drug level above therapeutic [Recovering/Resolving]
